FAERS Safety Report 5873747-8 (Version None)
Quarter: 2008Q3

REPORT INFORMATION
  Report Type: 
  Country: None (occurrence: None)
  Receive Date: 20080903
  Receipt Date: 20080903
  Transmission Date: 20090109
  Serious: Yes (Hospitalization)
  Sender: FDA-Public Use
  Company Number: None

PATIENT
  Age: 85 Year
  Sex: Male
  Weight: 83.01 kg

DRUGS (1)
  1. ETODOLAC [Suspect]
     Indication: RHEUMATOID ARTHRITIS
     Dosage: 400 MG BID PO
     Route: 048
     Dates: start: 20080506, end: 20080702

REACTIONS (2)
  - DIARRHOEA [None]
  - GASTRIC HAEMORRHAGE [None]
